FAERS Safety Report 6067747-5 (Version None)
Quarter: 2009Q1

REPORT INFORMATION
  Report Type: 
  Country: None (occurrence: None)
  Receive Date: 20090205
  Receipt Date: 20090130
  Transmission Date: 20090719
  Serious: Yes (Death, Other)
  Sender: FDA-Public Use
  Company Number: IT-GENENTECH-276567

PATIENT

DRUGS (4)
  1. ACTIVASE [Suspect]
     Indication: PULMONARY EMBOLISM
     Dosage: 10 MG, SINGLE
     Route: 042
  2. ACTIVASE [Suspect]
     Dosage: 90 MG, UNK
     Route: 042
  3. UNFRACTIONATED HEPARIN [Suspect]
     Indication: PULMONARY EMBOLISM
     Route: 042
  4. ANTICOAGULANT [Concomitant]
     Indication: ANTICOAGULANT THERAPY
     Route: 048

REACTIONS (2)
  - DEATH [None]
  - THROMBOCYTOPENIA [None]
